FAERS Safety Report 18926386 (Version 1)
Quarter: 2021Q1

REPORT INFORMATION
  Report Type: Report from Study
  Country: None (occurrence: DE)
  Receive Date: 20210222
  Receipt Date: 20210222
  Transmission Date: 20210420
  Serious: Yes (Hospitalization, Other)
  Sender: FDA-Public Use
  Company Number: DE-ABBVIE-21K-062-3778789-00

PATIENT
  Age: 40 Year
  Sex: Female

DRUGS (2)
  1. HUMIRA [Suspect]
     Active Substance: ADALIMUMAB
     Indication: CROHN^S DISEASE
     Route: 058
     Dates: start: 20171211, end: 20201120
  2. QLAIRA [Concomitant]
     Active Substance: DIENOGEST\ESTRADIOL VALERATE
     Indication: CONTRACEPTION
     Route: 048
     Dates: start: 2012

REACTIONS (9)
  - Gastrointestinal obstruction [Recovered/Resolved]
  - Abscess intestinal [Recovered/Resolved]
  - Benign small intestinal neoplasm [Recovered/Resolved]
  - Malaise [Recovered/Resolved]
  - Intestinal obstruction [Recovered/Resolved]
  - Post procedural complication [Unknown]
  - Enteritis [Recovered/Resolved]
  - Back pain [Recovered/Resolved]
  - Abdominal pain upper [Recovered/Resolved]

NARRATIVE: CASE EVENT DATE: 2020
